FAERS Safety Report 10507660 (Version 1)
Quarter: 2014Q3

REPORT INFORMATION
  Report Type: Spontaneous
  Country: US (occurrence: None)
  Receive Date: 20140915
  Receipt Date: 20140915
  Transmission Date: 20150326
  Serious: Yes (Other)
  Sender: FDA-Public Use
  Company Number: 2013-US-002032

PATIENT
  Age: 57 Year
  Sex: Female
  Weight: 47.2 kg

DRUGS (7)
  1. ESCITALOPRAM [Suspect]
     Active Substance: ESCITALOPRAM OXALATE
     Indication: PRODUCT USED FOR UNKNOWN INDICATION
  2. TRAMADOL (TRAMADOL HYDROCHLORIDE) [Concomitant]
     Active Substance: TRAMADOL HYDROCHLORIDE
  3. GEMFIBROZIL (GEMFIBROZIL) [Concomitant]
     Active Substance: GEMFIBROZIL
  4. LANOXIN [Concomitant]
     Active Substance: DIGOXIN
  5. MAXALT (RIZATRIPTAN BENZOATE) [Concomitant]
     Active Substance: RIZATRIPTAN BENZOATE
  6. LISINOPRIL (LISINOPRIL) [Concomitant]
     Active Substance: LISINOPRIL
  7. XYREM [Suspect]
     Active Substance: SODIUM OXYBATE
     Indication: NARCOLEPSY
     Route: 048
     Dates: start: 200906

REACTIONS (1)
  - Hypertension [None]

NARRATIVE: CASE EVENT DATE: 201309
